FAERS Safety Report 6809712-3 (Version None)
Quarter: 2010Q2

REPORT INFORMATION
  Report Type: 
  Country: None (occurrence: None)
  Receive Date: 20100630
  Receipt Date: 20100625
  Transmission Date: 20101027
  Serious: Yes (Other)
  Sender: FDA-Public Use
  Company Number: JP-PFIZER INC-2010079899

PATIENT

DRUGS (7)
  1. GENOTROPIN [Suspect]
     Indication: RENAL FAILURE CHRONIC
     Dosage: 1 MG, 1X/DAY
     Route: 058
     Dates: start: 20090601, end: 20091201
  2. GENOTROPIN [Suspect]
     Dosage: 2 MG, 1X/DAY
     Route: 058
     Dates: start: 20091201
  3. LONGES [Concomitant]
     Dosage: 10 MG, UNK
     Route: 048
  4. CALCIUM CARBONATE [Concomitant]
     Dosage: 3000 MG, UNK
     Route: 048
  5. ROCALTROL [Concomitant]
     Dosage: 0.5 MG, UNK
     Route: 048
  6. SENNOSIDES [Concomitant]
     Indication: CONSTIPATION
     Dosage: 12 MG, UNK
     Route: 048
  7. PREDONINE [Concomitant]
     Dosage: 2.5 MG, UNK
     Route: 048

REACTIONS (1)
  - HYPERTENSION [None]
